FAERS Safety Report 4312164-9 (Version None)
Quarter: 2004Q1

REPORT INFORMATION
  Report Type: 
  Country: None (occurrence: None)
  Receive Date: 20040303
  Receipt Date: 20010520
  Transmission Date: 20041129
  Serious: Yes (Other)
  Sender: FDA-Public Use
  Company Number: US-JNJFOC-20031104504

PATIENT
  Age: 57 Year
  Sex: Male

DRUGS (36)
  1. INFLIXIMAB (INFLIXIMAB, RECOMBINANT) LYOPHILIZED POWDER [Suspect]
     Indication: RHEUMATOID ARTHRITIS
     Dosage: 10 MG/KG, INTRAVENOUS
     Route: 042
     Dates: start: 19971218
  2. INFLIXIMAB (INFLIXIMAB, RECOMBINANT) LYOPHILIZED POWDER [Suspect]
     Indication: RHEUMATOID ARTHRITIS
     Dosage: 10 MG/KG, INTRAVENOUS
     Route: 042
     Dates: start: 19980106
  3. INFLIXIMAB (INFLIXIMAB, RECOMBINANT) LYOPHILIZED POWDER [Suspect]
     Indication: RHEUMATOID ARTHRITIS
     Dosage: 10 MG/KG, INTRAVENOUS
     Route: 042
     Dates: start: 19980204
  4. INFLIXIMAB (INFLIXIMAB, RECOMBINANT) LYOPHILIZED POWDER [Suspect]
     Indication: RHEUMATOID ARTHRITIS
     Dosage: 10 MG/KG, INTRAVENOUS
     Route: 042
     Dates: start: 19980403
  5. INFLIXIMAB (INFLIXIMAB, RECOMBINANT) LYOPHILIZED POWDER [Suspect]
     Indication: RHEUMATOID ARTHRITIS
     Dosage: 10 MG/KG, INTRAVENOUS
     Route: 042
     Dates: start: 19980529
  6. INFLIXIMAB (INFLIXIMAB, RECOMBINANT) LYOPHILIZED POWDER [Suspect]
     Indication: RHEUMATOID ARTHRITIS
     Dosage: 10 MG/KG, INTRAVENOUS
     Route: 042
     Dates: start: 19980723
  7. INFLIXIMAB (INFLIXIMAB, RECOMBINANT) LYOPHILIZED POWDER [Suspect]
     Indication: RHEUMATOID ARTHRITIS
     Dosage: 10 MG/KG, INTRAVENOUS
     Route: 042
     Dates: start: 19980916
  8. INFLIXIMAB (INFLIXIMAB, RECOMBINANT) LYOPHILIZED POWDER [Suspect]
     Indication: RHEUMATOID ARTHRITIS
     Dosage: 10 MG/KG, INTRAVENOUS
     Route: 042
     Dates: start: 19981118
  9. INFLIXIMAB (INFLIXIMAB, RECOMBINANT) LYOPHILIZED POWDER [Suspect]
     Indication: RHEUMATOID ARTHRITIS
     Dosage: 10 MG/KG, INTRAVENOUS
     Route: 042
     Dates: start: 19990111
  10. INFLIXIMAB (INFLIXIMAB, RECOMBINANT) LYOPHILIZED POWDER [Suspect]
     Indication: RHEUMATOID ARTHRITIS
     Dosage: 10 MG/KG, INTRAVENOUS
     Route: 042
     Dates: start: 19990301
  11. INFLIXIMAB (INFLIXIMAB, RECOMBINANT) LYOPHILIZED POWDER [Suspect]
     Indication: RHEUMATOID ARTHRITIS
     Dosage: 10 MG/KG, INTRAVENOUS
     Route: 042
     Dates: start: 19990427
  12. INFLIXIMAB (INFLIXIMAB, RECOMBINANT) LYOPHILIZED POWDER [Suspect]
     Indication: RHEUMATOID ARTHRITIS
     Dosage: 10 MG/KG, INTRAVENOUS
     Route: 042
     Dates: start: 19990617
  13. INFLIXIMAB (INFLIXIMAB, RECOMBINANT) LYOPHILIZED POWDER [Suspect]
     Indication: RHEUMATOID ARTHRITIS
     Dosage: 10 MG/KG, INTRAVENOUS
     Route: 042
     Dates: start: 19990810
  14. INFLIXIMAB (INFLIXIMAB, RECOMBINANT) LYOPHILIZED POWDER [Suspect]
     Indication: RHEUMATOID ARTHRITIS
     Dosage: 10 MG/KG, INTRAVENOUS
     Route: 042
     Dates: start: 19991019
  15. INFLIXIMAB (INFLIXIMAB, RECOMBINANT) LYOPHILIZED POWDER [Suspect]
     Indication: RHEUMATOID ARTHRITIS
     Dosage: 10 MG/KG, INTRAVENOUS
     Route: 042
     Dates: start: 19991209
  16. INFLIXIMAB (INFLIXIMAB, RECOMBINANT) LYOPHILIZED POWDER [Suspect]
  17. PLACEBO (PLACEBO) [Suspect]
     Indication: RHEUMATOID ARTHRITIS
     Dosage: INTRAVENOUS
     Route: 042
     Dates: start: 19980304
  18. PLACEBO (PLACEBO) [Suspect]
     Indication: RHEUMATOID ARTHRITIS
     Dosage: INTRAVENOUS
     Route: 042
     Dates: start: 19980430
  19. PLACEBO (PLACEBO) [Suspect]
     Indication: RHEUMATOID ARTHRITIS
     Dosage: INTRAVENOUS
     Route: 042
     Dates: start: 19980625
  20. PLACEBO (PLACEBO) [Suspect]
     Indication: RHEUMATOID ARTHRITIS
     Dosage: INTRAVENOUS
     Route: 042
     Dates: start: 19980820
  21. PLACEBO (PLACEBO) [Suspect]
     Indication: RHEUMATOID ARTHRITIS
     Dosage: INTRAVENOUS
     Route: 042
     Dates: start: 19981014
  22. PLACEBO (PLACEBO) [Suspect]
     Indication: RHEUMATOID ARTHRITIS
     Dosage: INTRAVENOUS
     Route: 042
     Dates: start: 19981216
  23. PLACEBO (PLACEBO) [Suspect]
     Indication: RHEUMATOID ARTHRITIS
     Dosage: INTRAVENOUS
     Route: 042
     Dates: start: 19990201
  24. PLACEBO (PLACEBO) [Suspect]
     Indication: RHEUMATOID ARTHRITIS
     Dosage: INTRAVENOUS
     Route: 042
     Dates: start: 19990331
  25. PLACEBO (PLACEBO) [Suspect]
     Indication: RHEUMATOID ARTHRITIS
     Dosage: INTRAVENOUS
     Route: 042
     Dates: start: 19990527
  26. PLACEBO (PLACEBO) [Suspect]
     Indication: RHEUMATOID ARTHRITIS
     Dosage: INTRAVENOUS
     Route: 042
     Dates: start: 19990722
  27. PLACEBO (PLACEBO) [Suspect]
     Indication: RHEUMATOID ARTHRITIS
     Dosage: INTRAVENOUS
     Route: 042
     Dates: start: 19990921
  28. PLACEBO (PLACEBO) [Suspect]
     Indication: RHEUMATOID ARTHRITIS
     Dosage: INTRAVENOUS
     Route: 042
     Dates: start: 19991109
  29. METHOTREXATE [Concomitant]
  30. TYLENOL #3 (ACETAMINOPHEN/CODEINE) TABLETS [Concomitant]
  31. FOLIC ACID [Concomitant]
  32. ATARAX [Concomitant]
  33. ACETAMINOPHEN [Concomitant]
  34. PROCARDIA XL [Concomitant]
  35. ALLEGRA [Concomitant]
  36. PROZAC [Concomitant]

REACTIONS (1)
  - PROSTATE CANCER [None]
